FAERS Safety Report 6885005-3 (Version None)
Quarter: 2010Q3

REPORT INFORMATION
  Report Type: 
  Country: None (occurrence: None)
  Receive Date: 20100729
  Receipt Date: 20071012
  Transmission Date: 20110219
  Serious: No
  Sender: FDA-Public Use
  Company Number: US-PFIZER INC-2007086856

PATIENT
  Age: 71 Year
  Sex: Male

DRUGS (4)
  1. CELEBREX [Suspect]
  2. CIPROFLOXACIN [Concomitant]
  3. PROSED/DS [Concomitant]
  4. TROSPIUM CHLORIDE [Concomitant]

REACTIONS (1)
  - DRUG INEFFECTIVE [None]
